FAERS Safety Report 9278532 (Version 5)
Quarter: 2014Q1

REPORT INFORMATION
  Report Type: Report from Study
  Country: IL (occurrence: IL)
  Receive Date: 20130508
  Receipt Date: 20140210
  Transmission Date: 20141002
  Serious: Yes (Hospitalization)
  Sender: FDA-Public Use
  Company Number: IL-NAPPMUNDI-DEU-2013-0011430

PATIENT
  Age: 62 Year
  Sex: Male
  Weight: 82 kg

DRUGS (12)
  1. OXY CR TAB [Suspect]
     Indication: PAIN
     Dosage: 80 MG, DAILY
     Route: 048
     Dates: start: 20130409, end: 20130409
  2. OXY CR TAB [Suspect]
     Dosage: 80 MG, BID
     Route: 048
     Dates: start: 20130325, end: 20130408
  3. OXY CR TAB [Suspect]
     Dosage: 80 MG, DAILY
     Route: 048
     Dates: start: 20130324, end: 20130324
  4. OXYCODONE HCL IR CAPSULES [Suspect]
     Indication: CANCER PAIN
     Dosage: 25 MG, PRN
     Route: 048
     Dates: start: 20130406, end: 20130408
  5. OXYCODONE HCL IR CAPSULES [Suspect]
     Dosage: 25 MG, PRN
     Route: 048
     Dates: start: 20130402, end: 20130404
  6. OXYCODONE HCL IR CAPSULES [Suspect]
     Dosage: 25 MG, PRN
     Route: 048
     Dates: start: 20130324, end: 20130328
  7. BISACODYL [Concomitant]
     Dosage: 10 MG, PRN
     Route: 048
     Dates: start: 20130403, end: 20130403
  8. OXYCONTIN TABLETS (NF) [Concomitant]
     Indication: CANCER PAIN
     Dosage: 60 MG, DAILY
     Route: 048
     Dates: start: 20130409
  9. RAFASSAL                           /00000301/ [Concomitant]
     Indication: COLITIS ULCERATIVE
     Dosage: 500 MG, DAILY
     Route: 048
  10. MERCAPTOPURINE [Concomitant]
     Indication: COLITIS ULCERATIVE
     Dosage: 50 MG, DAILY
     Route: 048
  11. ARCOXIA [Concomitant]
     Indication: CANCER PAIN
     Dosage: 90 MG, DAILY
     Route: 048
     Dates: start: 20130324
  12. AVODART [Concomitant]
     Indication: BENIGN PROSTATIC HYPERPLASIA
     Dosage: UNK
     Dates: start: 2009

REACTIONS (1)
  - Venous thrombosis limb [Recovered/Resolved]
